FAERS Safety Report 16694789 (Version 2)
Quarter: 2019Q3

REPORT INFORMATION
  Report Type: Report from Study
  Country: US (occurrence: US)
  Receive Date: 20190812
  Receipt Date: 20190830
  Transmission Date: 20191004
  Serious: Yes (Other)
  Sender: FDA-Public Use
  Company Number: US-HLSUS-2019-US-000726

PATIENT
  Age: 55 Year
  Sex: Male
  Weight: 79.38 kg

DRUGS (2)
  1. SANDOZ CLOZAPINE [Suspect]
     Active Substance: CLOZAPINE
     Route: 048
  2. ANTIBIOTICS [Concomitant]
     Active Substance: UNSPECIFIED INGREDIENT

REACTIONS (3)
  - Neutrophil count decreased [Unknown]
  - Ill-defined disorder [Unknown]
  - Neutrophilia [Unknown]

NARRATIVE: CASE EVENT DATE: 20190607
